FAERS Safety Report 7914590-5 (Version None)
Quarter: 2011Q4

REPORT INFORMATION
  Report Type: 
  Country: None (occurrence: None)
  Receive Date: 20111115
  Receipt Date: 20111103
  Transmission Date: 20120403
  Serious: Yes (Other)
  Sender: FDA-Public Use
  Company Number: PHHY2011BR097555

PATIENT
  Sex: Female
  Weight: 65 kg

DRUGS (3)
  1. INDAPEN [Concomitant]
     Dosage: 1.5 MG, DAILY
     Route: 048
     Dates: start: 20100101
  2. DIOVAN [Suspect]
     Indication: HYPERTENSION
     Dosage: 0.5 DF(160 MG) BID
     Route: 048
     Dates: start: 20090101
  3. DIOVAN [Suspect]
     Dosage: 1 DF(80 MG) BID

REACTIONS (7)
  - LOCALISED OEDEMA [None]
  - EMOTIONAL DISORDER [None]
  - FACE OEDEMA [None]
  - INSOMNIA [None]
  - OEDEMA PERIPHERAL [None]
  - BLOOD PRESSURE INCREASED [None]
  - WRONG TECHNIQUE IN DRUG USAGE PROCESS [None]
